FAERS Safety Report 18205144 (Version 4)
Quarter: 2021Q1

REPORT INFORMATION
  Report Type: Other
  Country: CA (occurrence: CA)
  Receive Date: 20200827
  Receipt Date: 20210302
  Transmission Date: 20210419
  Serious: Yes (Other)
  Sender: FDA-Public Use
  Company Number: CA-CELLTRION INC.-2020CA025525

PATIENT

DRUGS (19)
  1. ACETAMINOPHEN. [Concomitant]
     Active Substance: ACETAMINOPHEN
     Indication: PREMEDICATION
     Dosage: 650 MILLIGRAM
     Route: 048
  2. LEFLUNOMIDE. [Concomitant]
     Active Substance: LEFLUNOMIDE
  3. OLMETEC [Concomitant]
     Active Substance: OLMESARTAN MEDOXOMIL
  4. DIPHENHYDRAMINE HYDROCHLORIDE. [Concomitant]
     Active Substance: DIPHENHYDRAMINE HYDROCHLORIDE
     Indication: PREMEDICATION
     Dosage: 50 MILLIGRAM
     Route: 048
  5. JENTADUETO [Concomitant]
     Active Substance: LINAGLIPTIN\METFORMIN HYDROCHLORIDE
  6. TYLENOL [Concomitant]
     Active Substance: ACETAMINOPHEN
  7. LEUCOVORIN [FOLINIC ACID] [Concomitant]
     Active Substance: LEUCOVORIN
  8. ACETAMINOPHEN AND CODEINE [Suspect]
     Active Substance: ACETAMINOPHEN\CODEINE PHOSPHATE
     Indication: PRODUCT USED FOR UNKNOWN INDICATION
     Route: 065
  9. ACETYLSALICYLIC ACID [Concomitant]
     Active Substance: ASPIRIN
  10. ACETAMINOPHEN. [Concomitant]
     Active Substance: ACETAMINOPHEN
     Indication: PREMEDICATION
     Dosage: 1000 MILLIGRAM
     Route: 048
  11. HYDROXYCHLOROQUINE [Concomitant]
     Active Substance: HYDROXYCHLOROQUINE
  12. METHYLPREDNISOLONE. [Concomitant]
     Active Substance: METHYLPREDNISOLONE
     Indication: PREMEDICATION
     Dosage: 100 MILLIGRAM
     Route: 042
  13. HYDROXYCHLOROQUINE SULFATE. [Concomitant]
     Active Substance: HYDROXYCHLOROQUINE SULFATE
     Dosage: UNK
  14. PREDNISONE. [Concomitant]
     Active Substance: PREDNISONE
  15. RITUXIMAB (UNKNOWN) [Suspect]
     Active Substance: RITUXIMAB
     Indication: RHEUMATOID ARTHRITIS
     Dosage: 1000 MILLIGRAM, 1 EVERY 15 DAYS
     Route: 042
  16. ARAVA [Concomitant]
     Active Substance: LEFLUNOMIDE
     Dosage: UNK
  17. BENADRYL [Concomitant]
     Active Substance: DIPHENHYDRAMINE HYDROCHLORIDE
     Dosage: UNK
  18. METHYLPREDNISOLONE SODIUM SUCCINATE. [Concomitant]
     Active Substance: METHYLPREDNISOLONE SODIUM SUCCINATE
  19. MOBICOX [Concomitant]
     Active Substance: MELOXICAM

REACTIONS (19)
  - Hepatic enzyme increased [Not Recovered/Not Resolved]
  - Hepatic pain [Not Recovered/Not Resolved]
  - Pruritus [Not Recovered/Not Resolved]
  - Product use issue [Not Recovered/Not Resolved]
  - Off label use [Unknown]
  - Headache [Not Recovered/Not Resolved]
  - Arthralgia [Not Recovered/Not Resolved]
  - Helicobacter infection [Not Recovered/Not Resolved]
  - Blood pressure diastolic abnormal [Not Recovered/Not Resolved]
  - Weight increased [Not Recovered/Not Resolved]
  - Off label use [Not Recovered/Not Resolved]
  - Blood pressure diastolic increased [Not Recovered/Not Resolved]
  - Diabetes mellitus [Not Recovered/Not Resolved]
  - Blood pressure increased [Not Recovered/Not Resolved]
  - Inflammation [Not Recovered/Not Resolved]
  - C-reactive protein increased [Not Recovered/Not Resolved]
  - Joint swelling [Not Recovered/Not Resolved]
  - Musculoskeletal stiffness [Not Recovered/Not Resolved]
  - Pain [Not Recovered/Not Resolved]
